FAERS Safety Report 7186395-7 (Version None)
Quarter: 2010Q4

REPORT INFORMATION
  Report Type: 
  Country: None (occurrence: None)
  Receive Date: 20101222
  Receipt Date: 20100621
  Transmission Date: 20110411
  Serious: No
  Sender: FDA-Public Use
  Company Number: US-AMGEN-KDL419729

PATIENT

DRUGS (16)
  1. ENBREL [Suspect]
     Indication: PRODUCT USED FOR UNKNOWN INDICATION
     Dosage: 50 MG, QWK
     Route: 058
  2. PANADEINE CO [Concomitant]
     Dosage: UNK UNK, UNK
  3. PREDNISONE [Concomitant]
     Dosage: 1 MG, UNK
  4. WARFARIN SODIUM [Concomitant]
     Dosage: 2 MG, UNK
  5. TRAMADOL HYDROCHLORIDE [Concomitant]
     Dosage: 50 MG, UNK
  6. CEPHALEXIN [Concomitant]
     Dosage: 500 MG, UNK
  7. LORAZEPAM [Concomitant]
     Dosage: 1 MG, UNK
  8. SIMVASTATIN [Concomitant]
     Dosage: 10 MG, UNK
  9. TRIAMTERENE AND HYDROCHLOROTHIAZIDE [Concomitant]
     Dosage: UNK UNK, UNK
  10. SULFASALAZINE [Concomitant]
     Dosage: 500 MG, UNK
  11. PYRIDOXINE HYDROCHLORIDE [Concomitant]
     Dosage: 500 MG, UNK
  12. OLMESARTAN MEDOXOMIL [Concomitant]
     Dosage: 20 MG, UNK
  13. ONE-A-DAY [Concomitant]
     Dosage: UNK UNK, UNK
  14. MORPHINE SULFATE [Concomitant]
     Dosage: 10 MG, UNK
  15. CYANOCOBALAMIN [Concomitant]
     Dosage: UNK UNK, UNK
  16. UNSPECIFIED NUTRITIONAL SUPPLEMENT [Concomitant]

REACTIONS (1)
  - INFLUENZA LIKE ILLNESS [None]
